FAERS Safety Report 11941076 (Version 4)
Quarter: 2016Q2

REPORT INFORMATION
  Report Type: Spontaneous
  Country: US (occurrence: US)
  Receive Date: 20160122
  Receipt Date: 20160421
  Transmission Date: 20160815
  Serious: Yes (Other)
  Sender: FDA-Public Use
  Company Number: US-AKORN PHARMACEUTICALS-2016AKN00029

PATIENT
  Age: 32 Year
  Sex: Female

DRUGS (17)
  1. VITAMIN B12 [Concomitant]
     Active Substance: CYANOCOBALAMIN
     Dosage: UNK ?G, UNK
  2. BENZOYL PEROXIDE. [Concomitant]
     Active Substance: BENZOYL PEROXIDE
     Route: 061
  3. RETIN-A MICRO [Concomitant]
     Active Substance: TRETINOIN
     Route: 061
  4. TRIAMCINOLONE ACETONIDE. [Concomitant]
     Active Substance: TRIAMCINOLONE ACETONIDE
  5. ACZONE [Concomitant]
     Active Substance: DAPSONE
     Route: 061
  6. VITAMIN D [Concomitant]
     Active Substance: CHOLECALCIFEROL
  7. MYORISAN [Suspect]
     Active Substance: ISOTRETINOIN
     Indication: ACNE
     Dosage: 30 MG, 1X/DAY
     Route: 048
     Dates: start: 20151204, end: 20160103
  8. KEFLEX [Concomitant]
     Active Substance: CEPHALEXIN
  9. MULTIVITAMIN [Concomitant]
     Active Substance: VITAMINS
  10. ENBREL [Concomitant]
     Active Substance: ETANERCEPT
     Dosage: 50 MG, UNK
     Route: 058
     Dates: start: 20100210
  11. IRON COMPLEX, VITAMIN C, VITAMIN B-12 [Concomitant]
  12. ELETONE [Concomitant]
     Route: 061
  13. ANCANYA [Concomitant]
     Route: 061
  14. ELIDEL [Concomitant]
     Active Substance: PIMECROLIMUS
     Route: 061
  15. CLOBETASOL [Concomitant]
     Active Substance: CLOBETASOL
     Route: 061
  16. PROTOPIC [Concomitant]
     Active Substance: TACROLIMUS
     Route: 061
  17. II KENALOG [Concomitant]

REACTIONS (3)
  - Exposure during pregnancy [Recovered/Resolved]
  - Blood potassium decreased [Unknown]
  - Abortion induced [Not Recovered/Not Resolved]

NARRATIVE: CASE EVENT DATE: 20151223
